FAERS Safety Report 5023216-2 (Version None)
Quarter: 2006Q2

REPORT INFORMATION
  Report Type: 
  Country: None (occurrence: None)
  Receive Date: 20060428
  Receipt Date: 20060307
  Transmission Date: 20061013
  Serious: No
  Sender: FDA-Public Use
  Company Number: 012046

PATIENT
  Age: 49 Year
  Sex: Male

DRUGS (4)
  1. PRIALT [Suspect]
     Indication: BACK PAIN
     Dosage: SEE IMAGE
     Route: 037
     Dates: start: 20051027, end: 20051201
  2. PRIALT [Suspect]
     Indication: BACK PAIN
     Dosage: SEE IMAGE
     Route: 037
     Dates: end: 20060213
  3. PRIALT [Suspect]
     Indication: BACK PAIN
     Dosage: SEE IMAGE
     Route: 037
     Dates: start: 20051201
  4. TORADOL [Concomitant]

REACTIONS (13)
  - COGNITIVE DISORDER [None]
  - CONFUSIONAL STATE [None]
  - DEPRESSED LEVEL OF CONSCIOUSNESS [None]
  - DYSKINESIA [None]
  - GLOSSODYNIA [None]
  - HALLUCINATION [None]
  - HEADACHE [None]
  - ILL-DEFINED DISORDER [None]
  - INITIAL INSOMNIA [None]
  - MENTAL IMPAIRMENT [None]
  - SINUS CONGESTION [None]
  - TONGUE BITING [None]
  - URINARY RETENTION [None]
